FAERS Safety Report 5123118-7 (Version None)
Quarter: 2006Q4

REPORT INFORMATION
  Report Type: 
  Country: None (occurrence: None)
  Receive Date: 20061005
  Receipt Date: 20060920
  Transmission Date: 20070319
  Serious: Yes (Hospitalization, Other)
  Sender: FDA-Public Use
  Company Number: 2006-08-1087

PATIENT
  Age: 65 Year
  Sex: Male
  Weight: 94.3482 kg

DRUGS (10)
  1. PEG-INTRON [Suspect]
     Indication: HEPATITIS C
     Dosage: 0.48 ML; QW; SC
     Route: 058
     Dates: start: 20060613
  2. REBETOL [Suspect]
     Indication: HEPATITIS C
     Dosage: 1200 MG; QD; PO
     Route: 048
     Dates: start: 20060613
  3. MICARDIS (CON.) [Concomitant]
  4. CARDURA (CON.) [Concomitant]
  5. NEXIUM (CON.) [Concomitant]
  6. LEXAPRO (CON.) [Concomitant]
  7. ASA (CON.) [Concomitant]
  8. BENTYL (CON.) [Concomitant]
  9. CANASA (CON.) [Concomitant]
  10. OMNICEF (CON.) [Concomitant]

REACTIONS (12)
  - ANAEMIA [None]
  - ASTHENIA [None]
  - BODY TEMPERATURE DECREASED [None]
  - BUNDLE BRANCH BLOCK RIGHT [None]
  - DEHYDRATION [None]
  - FATIGUE [None]
  - LOSS OF CONSCIOUSNESS [None]
  - ORTHOSTATIC HYPOTENSION [None]
  - PRODUCTIVE COUGH [None]
  - PULMONARY HILUM MASS [None]
  - SYNCOPE [None]
  - WHITE BLOOD CELL COUNT DECREASED [None]
